FAERS Safety Report 6707520-5 (Version None)
Quarter: 2010Q2

REPORT INFORMATION
  Report Type: 
  Country: None (occurrence: None)
  Receive Date: 20100503
  Receipt Date: 20090115
  Transmission Date: 20101027
  Serious: Yes (Other)
  Sender: FDA-Public Use
  Company Number: US-BAYER-200911055NA

PATIENT
  Age: 29 Year
  Sex: Male

DRUGS (1)
  1. CIPRO [Suspect]
     Indication: DRUG USE FOR UNKNOWN INDICATION
     Dates: start: 20080301

REACTIONS (2)
  - PARANOIA [None]
  - TINNITUS [None]
